FAERS Safety Report 8018324-8 (Version None)
Quarter: 2012Q1

REPORT INFORMATION
  Report Type: 
  Country: None (occurrence: None)
  Receive Date: 20120103
  Receipt Date: 20111223
  Transmission Date: 20120608
  Serious: Yes (Hospitalization, Other)
  Sender: FDA-Public Use
  Company Number: US-BAYER-2011-050991

PATIENT
  Age: 36 Year
  Sex: Female

DRUGS (5)
  1. ALBUTEROL [Concomitant]
     Indication: ASTHMA
  2. YASMIN [Suspect]
     Indication: CONTRACEPTION
     Dosage: UNK
     Dates: start: 20070101, end: 20080301
  3. IBUPROFEN (ADVIL) [Concomitant]
  4. DROSPIRENONE AND ETHINYL ESTRADIOL [Suspect]
     Indication: CONTRACEPTION
     Dosage: UNK
     Dates: start: 20080301, end: 20090601
  5. ZYRTEC [Concomitant]
     Indication: HYPERSENSITIVITY

REACTIONS (3)
  - CHOLECYSTITIS [None]
  - PULMONARY EMBOLISM [None]
  - CHEST PAIN [None]
